FAERS Safety Report 5244098-X (Version None)
Quarter: 2007Q1

REPORT INFORMATION
  Report Type: 
  Country: None (occurrence: None)
  Receive Date: 20061201
  Receipt Date: 20060816
  Transmission Date: 20070707
  Serious: No
  Sender: FDA-Public Use
  Company Number: 2006PV019627

PATIENT
  Age: 51 Year
  Sex: Female
  Weight: 112.4921 kg

DRUGS (5)
  1. BYETTA [Suspect]
     Indication: DIABETES MELLITUS NON-INSULIN-DEPENDENT
     Dosage: 5 MCG;BID;SC
     Route: 058
     Dates: start: 20060815
  2. GLYBURIDE [Concomitant]
  3. METFORMIN [Concomitant]
  4. AMITRIPTYLINE HCL [Concomitant]
  5. CYMBALTA [Concomitant]

REACTIONS (3)
  - DYSGEUSIA [None]
  - HYPOAESTHESIA [None]
  - NAUSEA [None]
